FAERS Safety Report 6241269-0 (Version None)
Quarter: 2009Q2

REPORT INFORMATION
  Report Type: 
  Country: None (occurrence: None)
  Receive Date: 20090619
  Receipt Date: 20090619
  Transmission Date: 20091009
  Serious: Yes (Other)
  Sender: FDA-Public Use
  Company Number: None

PATIENT
  Age: 50 Year
  Sex: Female
  Weight: 77.1115 kg

DRUGS (1)
  1. RYZOLT [Suspect]
     Indication: PAIN
     Dosage: ONE ONCE A DAY PO
     Route: 048
     Dates: start: 20090613, end: 20090613

REACTIONS (12)
  - BLOOD PRESSURE DECREASED [None]
  - DIARRHOEA [None]
  - DIZZINESS [None]
  - INSOMNIA [None]
  - MUSCLE TWITCHING [None]
  - NAUSEA [None]
  - NIGHT SWEATS [None]
  - PAIN [None]
  - PARAESTHESIA [None]
  - PRURITUS GENERALISED [None]
  - SOMNOLENCE [None]
  - VOMITING [None]
